FAERS Safety Report 19589997 (Version 1)
Quarter: 2021Q3

REPORT INFORMATION
  Report Type: Spontaneous
  Country: US (occurrence: US)
  Receive Date: 20210721
  Receipt Date: 20210721
  Transmission Date: 20211014
  Serious: No
  Sender: FDA-Public Use
  Company Number: US-SA-2021SA229106

PATIENT
  Sex: Female

DRUGS (1)
  1. LANTUS SOLOSTAR [Suspect]
     Active Substance: INSULIN GLARGINE
     Indication: TYPE 2 DIABETES MELLITUS
     Dosage: 35 IU, QD
     Route: 065

REACTIONS (9)
  - Fall [Unknown]
  - Incorrect disposal of product [Unknown]
  - Product dose omission in error [Unknown]
  - Gait disturbance [Unknown]
  - Injury associated with device [Unknown]
  - Osteoarthritis [Unknown]
  - Memory impairment [Unknown]
  - Confusional state [Unknown]
  - Inappropriate schedule of product administration [Unknown]
